FAERS Safety Report 5049001-3 (Version None)
Quarter: 2006Q3

REPORT INFORMATION
  Report Type: 
  Country: None (occurrence: None)
  Receive Date: 20060712
  Receipt Date: 20051122
  Transmission Date: 20061208
  Serious: No
  Sender: FDA-Public Use
  Company Number: US-GLAXOSMITHKLINE-A0583448A

PATIENT
  Age: 58 Year
  Sex: Female

DRUGS (5)
  1. IMITREX [Suspect]
     Dosage: 50MG AS REQUIRED
     Route: 048
     Dates: start: 19990101
  2. NEURONTIN [Concomitant]
  3. SEROQUEL [Concomitant]
  4. TOPAMAX [Concomitant]
  5. PSEUDOEPHEDRINE HCL [Concomitant]

REACTIONS (2)
  - CONSTIPATION [None]
  - INITIAL INSOMNIA [None]
